FAERS Safety Report 17202457 (Version 1)
Quarter: 2019Q4

REPORT INFORMATION
  Report Type: Other
  Country: FR (occurrence: FR)
  Receive Date: 20191226
  Receipt Date: 20191226
  Transmission Date: 20200122
  Serious: Yes (Other)
  Sender: FDA-Public Use
  Company Number: FR-VALIDUS PHARMACEUTICALS LLC-FR-2019VAL000885

PATIENT

DRUGS (4)
  1. FUROSEMIDE. [Suspect]
     Active Substance: FUROSEMIDE
     Indication: HYPERTENSIVE CRISIS
     Dosage: 125 MG, QD
     Route: 042
     Dates: start: 20180207, end: 20180212
  2. NICARDIPINE [Suspect]
     Active Substance: NICARDIPINE
     Indication: HYPERTENSIVE CRISIS
     Dosage: 2 MG, QH
     Route: 042
     Dates: start: 20180212, end: 20180212
  3. EUPRESSYL                          /00631801/ [Suspect]
     Active Substance: URAPIDIL
     Indication: HYPERTENSIVE CRISIS
     Dosage: 120 MG, QD
     Route: 048
     Dates: start: 20180210, end: 20180212
  4. RILMENIDINE [Suspect]
     Active Substance: RILMENIDINE
     Indication: HYPERTENSIVE CRISIS
     Dosage: 2 MG, QD (DATE OF LAST ADMINISTRATION 12-FEB-2018)
     Route: 048

REACTIONS (1)
  - Malaise [Recovered/Resolved]

NARRATIVE: CASE EVENT DATE: 20180212
